FAERS Safety Report 14232719 (Version 1)
Quarter: 2017Q4

REPORT INFORMATION
  Report Type: Spontaneous
  Country: US (occurrence: None)
  Receive Date: 20171128
  Receipt Date: 20171128
  Transmission Date: 20180321
  Serious: Yes (Hospitalization)
  Sender: FDA-Public Use
  Company Number: None

PATIENT
  Age: 47 Year
  Sex: Female
  Weight: 101.15 kg

DRUGS (2)
  1. ABILIFY [Concomitant]
     Active Substance: ARIPIPRAZOLE
  2. ZEPATIER [Suspect]
     Active Substance: ELBASVIR\GRAZOPREVIR
     Indication: HEPATITIS C VIRUS TEST
     Dosage: 50-100MG QD ORAL
     Route: 048
     Dates: start: 20170929

REACTIONS (7)
  - Energy increased [None]
  - Therapy cessation [None]
  - Pressure of speech [None]
  - Mania [None]
  - Paranoia [None]
  - Poor quality sleep [None]
  - Psychomotor hyperactivity [None]

NARRATIVE: CASE EVENT DATE: 20171106
